FAERS Safety Report 9333230 (Version 2)
Quarter: 2013Q2

REPORT INFORMATION
  Report Type: Spontaneous
  Country: JP (occurrence: None)
  Receive Date: 20130604
  Receipt Date: 20130611
  Transmission Date: 20140414
  Serious: Yes (Death)
  Sender: FDA-Public Use
  Company Number: TCI2013A02956

PATIENT
  Sex: 0

DRUGS (1)
  1. TAKEPRON [Suspect]
     Route: 041

REACTIONS (2)
  - Anaphylactic shock [None]
  - Wrong technique in drug usage process [None]
